FAERS Safety Report 5068233-1 (Version None)
Quarter: 2006Q3

REPORT INFORMATION
  Report Type: 
  Country: None (occurrence: None)
  Receive Date: 20060802
  Receipt Date: 20050614
  Transmission Date: 20061208
  Serious: Yes (Other)
  Sender: FDA-Public Use
  Company Number: US-BRISTOL-MYERS SQUIBB COMPANY-13003124

PATIENT
  Age: 58 Year
  Sex: Male
  Weight: 6 kg

DRUGS (4)
  1. COUMADIN [Suspect]
     Indication: AORTIC VALVE REPLACEMENT
     Dosage: ON 10MG FOR COUPLE OF DAYS/WEEK^ + 7.5MG OTHER DAYS;DOSE REDUCED TO 7.5MG QD 6/05;STOP FEW DAYS
     Route: 048
     Dates: start: 20020901
  2. LOPRESSOR [Concomitant]
     Dates: start: 20020901
  3. ALLOPURINOL [Concomitant]
     Dates: start: 20020901
  4. POTASSIUM [Concomitant]
     Dates: start: 20020901

REACTIONS (1)
  - INTERNATIONAL NORMALISED RATIO INCREASED [None]
